FAERS Safety Report 8769995 (Version 1)
Quarter: 2012Q4

REPORT INFORMATION
  Report Type: 
  Country: US (occurrence: US)
  Receive Date: 20120906
  Receipt Date: 20120906
  Transmission Date: 20130627
  Serious: No
  Sender: FDA-Public Use
  Company Number: US-TEVA-357389USA

PATIENT
  Age: 53 Year
  Sex: Male

DRUGS (1)
  1. NUVIGIL [Suspect]
     Indication: SOMNOLENCE

REACTIONS (4)
  - Muscle tightness [Not Recovered/Not Resolved]
  - Disturbance in attention [Not Recovered/Not Resolved]
  - Anxiety [Not Recovered/Not Resolved]
  - Off label use [Unknown]
